FAERS Safety Report 25931611 (Version 1)
Quarter: 2025Q4

REPORT INFORMATION
  Report Type: Spontaneous
  Country: US (occurrence: None)
  Receive Date: 20251015
  Receipt Date: 20251015
  Transmission Date: 20260117
  Serious: Yes (Other)
  Sender: FDA-CTU
  Company Number: None

PATIENT
  Age: 31 Year
  Sex: Female
  Weight: 59 kg

DRUGS (4)
  1. RINVOQ [Suspect]
     Active Substance: UPADACITINIB
  2. TREMFYA [Suspect]
     Active Substance: GUSELKUMAB
     Dosage: FREQUENCY : MONTHLY;?
     Route: 058
  3. INFLIXIMAB [Concomitant]
     Active Substance: INFLIXIMAB
  4. MERCAPTOPURINE [Concomitant]
     Active Substance: MERCAPTOPURINE

REACTIONS (2)
  - Primary breast lymphoma [None]
  - B-cell lymphoma [None]

NARRATIVE: CASE EVENT DATE: 20251014
